FAERS Safety Report 18643230 (Version 3)
Quarter: 2021Q4

REPORT INFORMATION
  Report Type: Report from Study
  Country: US (occurrence: US)
  Receive Date: 20201221
  Receipt Date: 20211122
  Transmission Date: 20220303
  Serious: Yes (Other)
  Sender: FDA-Public Use
  Company Number: NVSC2020US330834

PATIENT
  Age: 76 Year
  Sex: Female

DRUGS (4)
  1. ENTRESTO [Suspect]
     Active Substance: SACUBITRIL\VALSARTAN
     Indication: Product used for unknown indication
     Dosage: UNK UNK, BID
     Route: 048
     Dates: start: 20201119
  2. ENTRESTO [Suspect]
     Active Substance: SACUBITRIL\VALSARTAN
     Dosage: 1 DF, BID (97/103MG)
     Route: 048
  3. SPIRONOLACTONE [Concomitant]
     Active Substance: SPIRONOLACTONE
     Indication: Product used for unknown indication
     Dosage: UNK
     Route: 065
  4. FARXIGA [Concomitant]
     Active Substance: DAPAGLIFLOZIN PROPANEDIOL
     Indication: Diabetes mellitus
     Dosage: UNK
     Route: 065

REACTIONS (12)
  - Renal impairment [Unknown]
  - Decreased activity [Unknown]
  - Dyspnoea exertional [Unknown]
  - Joint swelling [Unknown]
  - Serum ferritin decreased [Unknown]
  - Fall [Unknown]
  - Fatigue [Unknown]
  - Asthenia [Unknown]
  - Pulmonary mass [Unknown]
  - Tooth fracture [Unknown]
  - Blood potassium increased [Unknown]
  - Cough [Unknown]
